FAERS Safety Report 8492397-0 (Version None)
Quarter: 2012Q2

REPORT INFORMATION
  Report Type: 
  Country: None (occurrence: None)
  Receive Date: 20120629
  Receipt Date: 20120629
  Transmission Date: 20120825
  Serious: Yes (Hospitalization)
  Sender: FDA-Public Use
  Company Number: None

PATIENT
  Age: 74 Year
  Sex: Male
  Weight: 141.4 kg

DRUGS (1)
  1. CLOPIDOGREL [Suspect]
     Indication: CEREBROVASCULAR ACCIDENT
     Dosage: 75 MG EVERY DAY PO
     Route: 048
     Dates: start: 20120307, end: 20120513

REACTIONS (3)
  - RED BLOOD CELL SEDIMENTATION RATE INCREASED [None]
  - LEUKOCYTOCLASTIC VASCULITIS [None]
  - RASH ERYTHEMATOUS [None]
